FAERS Safety Report 4683053-5 (Version None)
Quarter: 2005Q2

REPORT INFORMATION
  Report Type: 
  Country: None (occurrence: None)
  Receive Date: 20050606
  Receipt Date: 20050527
  Transmission Date: 20051028
  Serious: Yes (Hospitalization)
  Sender: FDA-Public Use
  Company Number: US-MERCK-0505USA03396

PATIENT
  Age: 48 Year
  Sex: Male

DRUGS (1)
  1. VIOXX [Suspect]
     Indication: JOINT INJURY
     Route: 048
     Dates: start: 20030508

REACTIONS (9)
  - ARTERIAL DISORDER [None]
  - BACTERIAL SEPSIS [None]
  - CYST [None]
  - EMOTIONAL DISTRESS [None]
  - MYOCARDIAL INFARCTION [None]
  - PERIPHERAL VASCULAR DISORDER [None]
  - RENAL FAILURE ACUTE [None]
  - SKIN ULCER [None]
  - THROMBOSIS [None]
